FAERS Safety Report 5205803-1 (Version None)
Quarter: 2007Q1

REPORT INFORMATION
  Report Type: 
  Country: None (occurrence: None)
  Receive Date: 20070108
  Receipt Date: 20070108
  Transmission Date: 20070707
  Serious: Yes (Hospitalization, Other)
  Sender: FDA-Public Use
  Company Number: None

PATIENT
  Age: 37 Year
  Sex: Female
  Weight: 74.8435 kg

DRUGS (4)
  1. ABILIFY [Suspect]
     Indication: BIPOLAR II DISORDER
     Dosage: 15 MG DAY PO
     Route: 048
     Dates: start: 20050401, end: 20060104
  2. LUPRON [Concomitant]
  3. TRAZODONE HCL [Concomitant]
  4. ZOLOFT [Concomitant]

REACTIONS (7)
  - AGITATION [None]
  - DRUG PRESCRIBING ERROR [None]
  - HALLUCINATION [None]
  - ILL-DEFINED DISORDER [None]
  - PARANOIA [None]
  - SUICIDAL IDEATION [None]
  - TARDIVE DYSKINESIA [None]
